FAERS Safety Report 7395799-9 (Version None)
Quarter: 2011Q2

REPORT INFORMATION
  Report Type: 
  Country: None (occurrence: None)
  Receive Date: 20110405
  Receipt Date: 20110401
  Transmission Date: 20111010
  Serious: No
  Sender: FDA-Public Use
  Company Number: US-BAYER-2011-028913

PATIENT
  Sex: Male

DRUGS (2)
  1. AVELOX [Suspect]
     Indication: BRONCHITIS
  2. AVELOX [Suspect]
     Indication: FEELING COLD
     Dosage: 400MG/ONCE A DAY
     Route: 048
     Dates: start: 20110327

REACTIONS (2)
  - NECK PAIN [None]
  - JOINT SWELLING [None]
